FAERS Safety Report 5610565-X (Version None)
Quarter: 2008Q1

REPORT INFORMATION
  Report Type: 
  Country: None (occurrence: None)
  Receive Date: 20080201
  Receipt Date: 20080128
  Transmission Date: 20080703
  Serious: Yes (Hospitalization)
  Sender: FDA-Public Use
  Company Number: KR-JNJFOC-20040506444

PATIENT
  Age: 26 Year
  Sex: Male

DRUGS (4)
  1. IBUPROFEN [Suspect]
     Indication: RESPIRATORY DISORDER
  2. IBUPROFEN [Suspect]
     Indication: MYALGIA
  3. IBUPROFEN [Suspect]
     Indication: HEADACHE
  4. DOXYCYCLIN [Concomitant]
     Indication: UPPER RESPIRATORY TRACT INFECTION

REACTIONS (1)
  - EOSINOPHILIC PNEUMONIA [None]
